FAERS Safety Report 12470581 (Version 1)
Quarter: 2016Q2

REPORT INFORMATION
  Report Type: Spontaneous
  Country: US (occurrence: None)
  Receive Date: 20160615
  Receipt Date: 20160615
  Transmission Date: 20160815
  Serious: No
  Sender: FDA-Public Use
  Company Number: None

PATIENT
  Sex: Female
  Weight: 90.72 kg

DRUGS (2)
  1. TRIAMCINOLONE ACETONIDE. [Concomitant]
     Active Substance: TRIAMCINOLONE ACETONIDE
  2. MIRENA [Suspect]
     Active Substance: LEVONORGESTREL
     Dates: start: 20110908, end: 20160614

REACTIONS (7)
  - Eczema [None]
  - Embedded device [None]
  - Device issue [None]
  - Complication of device removal [None]
  - Weight increased [None]
  - Back pain [None]
  - Vulvovaginal pruritus [None]
